FAERS Safety Report 21230197 (Version 1)
Quarter: 2022Q3

REPORT INFORMATION
  Report Type: Spontaneous
  Country: US (occurrence: US)
  Receive Date: 20220818
  Receipt Date: 20220818
  Transmission Date: 20221026
  Serious: No
  Sender: FDA-Public Use
  Company Number: US-ELI_LILLY_AND_COMPANY-US202208009245

PATIENT
  Age: 80 Year
  Sex: Male

DRUGS (1)
  1. CYMBALTA [Suspect]
     Active Substance: DULOXETINE HYDROCHLORIDE
     Indication: Seasonal affective disorder
     Dosage: 30 MG, BID
     Route: 048

REACTIONS (5)
  - Limb injury [Recovering/Resolving]
  - Inguinal hernia [Recovered/Resolved]
  - Arthritis [Recovering/Resolving]
  - Plantar fasciitis [Recovering/Resolving]
  - Dyspepsia [Recovered/Resolved]
